FAERS Safety Report 7600002-8 (Version None)
Quarter: 2011Q3

REPORT INFORMATION
  Report Type: 
  Country: None (occurrence: None)
  Receive Date: 20110711
  Receipt Date: 20110629
  Transmission Date: 20111222
  Serious: Yes (Other)
  Sender: FDA-Public Use
  Company Number: AU-JNJFOC-20110311348

PATIENT
  Age: 65 Year
  Sex: Male

DRUGS (14)
  1. RITONAVIR [Suspect]
     Indication: HIV INFECTION
     Route: 048
     Dates: start: 20060107
  2. VALTREX [Concomitant]
     Dates: start: 20090603
  3. GASTRO GEL [Concomitant]
     Dates: start: 20081209
  4. ABACAVIR SULFATE AND LAMIVUDINE [Suspect]
     Indication: HIV INFECTION
     Route: 048
     Dates: start: 20091119
  5. DARUNAVIR ETHANOLATE [Suspect]
     Indication: HIV INFECTION
     Route: 048
     Dates: start: 20060607
  6. TENOFOVIR DISOPROXIL FUMARATE [Suspect]
     Indication: HIV INFECTION
     Route: 065
     Dates: start: 20060107
  7. ACYCLOVIR [Concomitant]
     Dates: start: 20050118
  8. BACTRIM [Concomitant]
     Dates: start: 20050901
  9. FUZEON [Suspect]
     Indication: HIV INFECTION
     Route: 065
     Dates: start: 20060607, end: 20080126
  10. ETRAVIRINE [Suspect]
     Indication: HIV INFECTION
     Route: 048
     Dates: start: 20080326
  11. IMODIUM [Concomitant]
     Dates: start: 20080909
  12. RALTEGRAVIR [Suspect]
     Indication: HIV INFECTION
     Route: 048
     Dates: start: 20090603
  13. RALTEGRAVIR [Suspect]
     Route: 048
     Dates: start: 20060607, end: 20090602
  14. ABACAVIR SULFATE LAMIVUDINE AND ZIDOVUDINE [Suspect]
     Indication: HIV INFECTION
     Route: 065
     Dates: start: 20060607, end: 20091118

REACTIONS (2)
  - BOWEN'S DISEASE [None]
  - SQUAMOUS CELL CARCINOMA [None]
